FAERS Safety Report 23709932 (Version 1)
Quarter: 2024Q2

REPORT INFORMATION
  Report Type: Spontaneous
  Country: US (occurrence: None)
  Receive Date: 20240405
  Receipt Date: 20240405
  Transmission Date: 20240716
  Serious: No
  Sender: FDA-Public Use
  Company Number: US-MDD US Operations-ADM202304-001538

PATIENT
  Age: 63 Year
  Sex: Male

DRUGS (1)
  1. OSMOLEX ER [Suspect]
     Active Substance: AMANTADINE
     Indication: Product used for unknown indication
     Dosage: 129MG;193MG

REACTIONS (1)
  - Hallucination [Unknown]
